FAERS Safety Report 8771101 (Version 2)
Quarter: 2012Q4

REPORT INFORMATION
  Report Type: 
  Country: US (occurrence: US)
  Receive Date: 20120906
  Receipt Date: 20121002
  Transmission Date: 20130627
  Serious: Yes (Hospitalization)
  Sender: FDA-Public Use
  Company Number: US-B.I. PHARMACEUTICALS,INC./RIDGEFIELD-2012-BP-21308BP

PATIENT
  Age: 70 Year
  Sex: Male

DRUGS (15)
  1. PRADAXA [Suspect]
     Indication: CEREBROVASCULAR ACCIDENT PROPHYLAXIS
     Dosage: 300 mg
     Route: 048
     Dates: start: 201206, end: 20120820
  2. PRADAXA [Suspect]
     Indication: ATRIAL FIBRILLATION
  3. FISH OIL [Concomitant]
     Dosage: 1000 mg
  4. LIPITOR [Concomitant]
     Dosage: 10 mg
     Route: 048
  5. KLOR-CON [Concomitant]
     Route: 048
  6. B12 [Concomitant]
  7. HCTZ [Concomitant]
     Dosage: 25 mg
  8. RAMIPRIL [Concomitant]
     Dosage: 10 mg
  9. FLECAINIDE [Concomitant]
     Dosage: 200 mg
  10. TAZTIA XT [Concomitant]
     Dosage: 180 mg
  11. SUPER B COMPEX C VIT C + FA [Concomitant]
  12. D-3 [Concomitant]
     Dosage: 1000 U
  13. NAPROXEN [Concomitant]
     Dosage: 1000 U
     Dates: start: 201208, end: 20120820
  14. CALCITRIOL [Concomitant]
     Dosage: 0.25 mcg
  15. PROTONIX [Concomitant]
     Dosage: 100 mg

REACTIONS (2)
  - Rectal haemorrhage [Not Recovered/Not Resolved]
  - Haematochezia [Not Recovered/Not Resolved]
